FAERS Safety Report 10406724 (Version 1)
Quarter: 2014Q3

REPORT INFORMATION
  Report Type: Spontaneous
  Country: FR (occurrence: FR)
  Receive Date: 20140825
  Receipt Date: 20140825
  Transmission Date: 20150326
  Serious: Yes (Hospitalization, Other)
  Sender: FDA-Public Use
  Company Number: FR-ABBVIE-14K-056-1274196-00

PATIENT
  Age: 57 Year
  Sex: Female

DRUGS (7)
  1. ZOPICLONE [Concomitant]
     Active Substance: ZOPICLONE
     Indication: PRODUCT USED FOR UNKNOWN INDICATION
  2. MIRTAZAPINE. [Concomitant]
     Active Substance: MIRTAZAPINE
     Indication: PRODUCT USED FOR UNKNOWN INDICATION
  3. HUMIRA [Suspect]
     Active Substance: ADALIMUMAB
     Indication: PSORIASIS
     Route: 058
     Dates: start: 201209
  4. LANZOPRAZOL [Concomitant]
     Active Substance: LANSOPRAZOLE
     Indication: PRODUCT USED FOR UNKNOWN INDICATION
  5. METOJECT [Suspect]
     Active Substance: METHOTREXATE SODIUM
     Indication: PSORIASIS
     Dates: start: 201206, end: 201209
  6. METOJECT [Suspect]
     Active Substance: METHOTREXATE SODIUM
     Dates: start: 201212
  7. LERCANIDIPINE [Concomitant]
     Active Substance: LERCANIDIPINE
     Indication: PRODUCT USED FOR UNKNOWN INDICATION

REACTIONS (10)
  - Ejection fraction decreased [Unknown]
  - Acute coronary syndrome [Recovered/Resolved]
  - Troponin increased [Unknown]
  - Pain in jaw [Unknown]
  - Chest pain [Unknown]
  - Carotid arteriosclerosis [Unknown]
  - Pain in extremity [Unknown]
  - Hyperhidrosis [Unknown]
  - Electrocardiogram ST segment depression [Unknown]
  - Sense of oppression [Unknown]

NARRATIVE: CASE EVENT DATE: 20140720
